FAERS Safety Report 22225278 (Version 1)
Quarter: 2023Q2

REPORT INFORMATION
  Report Type: Spontaneous
  Country: CA (occurrence: None)
  Receive Date: 20230418
  Receipt Date: 20230418
  Transmission Date: 20230722
  Serious: Yes (Other)
  Sender: FDA-Public Use
  Company Number: CA-ROCHE-3330060

PATIENT
  Sex: Female

DRUGS (1)
  1. OCREVUS [Suspect]
     Active Substance: OCRELIZUMAB
     Indication: Relapsing-remitting multiple sclerosis
     Dosage: 2 DOSES OF 300 MG TWO WEEKS AND LAST INFUSION ON 04/OCT/2022
     Route: 042
     Dates: start: 20220324

REACTIONS (1)
  - Multiple sclerosis relapse [Recovered/Resolved]
